FAERS Safety Report 24381309 (Version 1)
Quarter: 2024Q4

REPORT INFORMATION
  Report Type: Report from Study
  Country: MX (occurrence: MX)
  Receive Date: 20241001
  Receipt Date: 20241001
  Transmission Date: 20250115
  Serious: Yes (Other)
  Sender: AMGEN
  Company Number: MX-AMGEN-MEXSL2024190585

PATIENT
  Age: 44 Year
  Sex: Female

DRUGS (1)
  1. VECTIBIX [Suspect]
     Active Substance: PANITUMUMAB
     Indication: Colon cancer metastatic
     Dosage: 500 MILLIGRAM, Q2WK (EVERY 14 DAYS)
     Route: 065
     Dates: start: 20231004

REACTIONS (2)
  - Pain [Unknown]
  - Metastases to bone [Unknown]
